FAERS Safety Report 4808178-2 (Version None)
Quarter: 2005Q4

REPORT INFORMATION
  Report Type: 
  Country: None (occurrence: None)
  Receive Date: 20051020
  Receipt Date: 20051011
  Transmission Date: 20060501
  Serious: Yes (Hospitalization, Other)
  Sender: FDA-Public Use
  Company Number: HQWYE804203OCT05

PATIENT
  Age: 63 Year
  Sex: Male

DRUGS (1)
  1. ROFERON/TEMSIROLIMUS (INTERFERON ALFA/TEMSIROLIMUS, INJECTION) [Suspect]
     Indication: RENAL CELL CARCINOMA STAGE UNSPECIFIED
     Dosage: 18 MU 3 TIMES A WEEK SC
     Route: 058
     Dates: start: 20040505

REACTIONS (3)
  - DISEASE PROGRESSION [None]
  - HEPATIC STEATOSIS [None]
  - LIVER DISORDER [None]
